FAERS Safety Report 19652512 (Version 2)
Quarter: 2022Q1

REPORT INFORMATION
  Report Type: Spontaneous
  Country: US (occurrence: US)
  Receive Date: 20210803
  Receipt Date: 20220131
  Transmission Date: 20220423
  Serious: Yes (Other)
  Sender: FDA-Public Use
  Company Number: US-SA-SAC20210802000076

PATIENT
  Age: 54 Year
  Sex: Female

DRUGS (1)
  1. AUBAGIO [Suspect]
     Active Substance: TERIFLUNOMIDE
     Indication: Multiple sclerosis
     Dosage: 14 MG, QD
     Route: 048
     Dates: start: 201604

REACTIONS (5)
  - Multiple sclerosis [Unknown]
  - Nausea [Unknown]
  - Vomiting [Unknown]
  - Feeling abnormal [Unknown]
  - Illness [Unknown]

NARRATIVE: CASE EVENT DATE: 20210601
